FAERS Safety Report 4724468-6 (Version None)
Quarter: 2005Q3

REPORT INFORMATION
  Report Type: 
  Country: None (occurrence: None)
  Receive Date: 20050721
  Receipt Date: 20050708
  Transmission Date: 20060218
  Serious: Yes (Hospitalization)
  Sender: FDA-Public Use
  Company Number: 2005099419

PATIENT
  Sex: Male
  Weight: 67 kg

DRUGS (4)
  1. VFEND [Suspect]
     Indication: FUNGUS SEROLOGY TEST POSITIVE
     Dosage: 400 MG (200 MG, 2 IN 1 D), ORAL
     Route: 048
     Dates: start: 20050602, end: 20050618
  2. AUGMENTIN '125' [Concomitant]
  3. PYOSTACINE (PRISTINAMYCIN) [Concomitant]
  4. ALL OTHER THERAPEUTIC PRODUCTS (AL OTHER THEARPEUTIC PRODUCTS) [Concomitant]

REACTIONS (5)
  - AGGRESSION [None]
  - CONFUSIONAL STATE [None]
  - HALLUCINATION [None]
  - PSYCHOMOTOR HYPERACTIVITY [None]
  - SUICIDAL IDEATION [None]
